FAERS Safety Report 25679796 (Version 1)
Quarter: 2025Q3

REPORT INFORMATION
  Report Type: Spontaneous
  Country: EG (occurrence: EG)
  Receive Date: 20250814
  Receipt Date: 20250814
  Transmission Date: 20251020
  Serious: Yes (Hospitalization, Other)
  Sender: ADAPTIS PHARMA INDIA
  Company Number: EG-Adaptis Pharma Private Limited-2182473

PATIENT
  Age: 36 Year
  Sex: Female

DRUGS (1)
  1. IBUPROFEN [Suspect]
     Active Substance: IBUPROFEN
     Indication: Abdominal pain

REACTIONS (2)
  - Embolia cutis medicamentosa [Recovered/Resolved]
  - Horner^s syndrome [Recovered/Resolved]
